FAERS Safety Report 7763122 (Version 5)
Quarter: 2014Q2

REPORT INFORMATION
  Report Type: Spontaneous
  Country: US (occurrence: US)
  Receive Date: 20110118
  Receipt Date: 20140404
  Transmission Date: 20141212
  Serious: Yes (Other)
  Sender: FDA-Public Use
  Company Number: US-BAYER-2011-004979

PATIENT
  Age: 26 Year
  Sex: Female
  Weight: 72.56 kg

DRUGS (11)
  1. YASMIN [Suspect]
     Dosage: UNK
     Dates: start: 20010821, end: 20020724
  2. PREVACID [Concomitant]
     Dosage: UNK
     Dates: start: 20011208
  3. ERYTHROMYCIN [Concomitant]
     Dosage: UNK
     Dates: start: 200108
  4. CLINDAMYCIN [Concomitant]
     Dosage: UNK
     Dates: start: 200108
  5. AMOXICILLIN [Concomitant]
     Dosage: UNK
     Dates: start: 200108
  6. ZITHROMAC [Concomitant]
     Dosage: UNK
     Dates: start: 200108
  7. SULFACETAMIDE [Concomitant]
     Dosage: UNK
     Dates: start: 200108
  8. PROPOXYPHENE [Concomitant]
     Dosage: UNK
     Dates: start: 200108
  9. PROCHLORPERAZINE [Concomitant]
     Dosage: UNK
     Dates: start: 200108
  10. CHLORHEXIDINE [Concomitant]
     Dosage: UNK
     Dates: start: 200108
  11. TOBRADEX [Concomitant]
     Dosage: UNK
     Dates: start: 200108

REACTIONS (5)
  - Cholecystitis chronic [None]
  - Gallbladder disorder [None]
  - Pain [None]
  - Emotional distress [None]
  - Injury [None]
